FAERS Safety Report 13898003 (Version 1)
Quarter: 2017Q3

REPORT INFORMATION
  Report Type: Spontaneous
  Country: US (occurrence: None)
  Receive Date: 20170823
  Receipt Date: 20170823
  Transmission Date: 20171127
  Serious: No
  Sender: FDA-Public Use
  Company Number: None

PATIENT
  Sex: Male

DRUGS (1)
  1. STELARA [Suspect]
     Active Substance: USTEKINUMAB
     Dosage: 90 MG EVERY 3 MONTHS SQ
     Route: 058
     Dates: start: 20170220

REACTIONS (4)
  - Rash [None]
  - Peripheral swelling [None]
  - Hypersensitivity [None]
  - Swelling face [None]
